FAERS Safety Report 5415326-2 (Version None)
Quarter: 2007Q3

REPORT INFORMATION
  Report Type: 
  Country: None (occurrence: None)
  Receive Date: 20070815
  Receipt Date: 20070810
  Transmission Date: 20080115
  Serious: Yes (Other)
  Sender: FDA-Public Use
  Company Number: US-ASTRAZENECA-2007UW19398

PATIENT
  Age: 66 Year
  Sex: Female
  Weight: 67.1 kg

DRUGS (4)
  1. ARIMIDEX [Suspect]
     Indication: BREAST CANCER
     Route: 048
     Dates: start: 20070601
  2. LEVOXOTHINE [Concomitant]
  3. NEXIUM [Concomitant]
  4. RESTASIS [Concomitant]

REACTIONS (5)
  - ARTHRALGIA [None]
  - HERPES ZOSTER [None]
  - HOT FLUSH [None]
  - NAUSEA [None]
  - STOMACH DISCOMFORT [None]
